FAERS Safety Report 13236799 (Version 1)
Quarter: 2017Q1

REPORT INFORMATION
  Report Type: Spontaneous
  Country: US (occurrence: US)
  Receive Date: 20170215
  Receipt Date: 20170215
  Transmission Date: 20170428
  Serious: No
  Sender: FDA-Public Use
  Company Number: US-TARO-2016TAR00828

PATIENT
  Age: 76 Year
  Sex: Female
  Weight: 79.37 kg

DRUGS (7)
  1. GABAPENTIN. [Concomitant]
     Active Substance: GABAPENTIN
     Dosage: 600 MG, 1X/DAY IN THE AM
  2. TRIAMTERENE AND HYDROCHLOROTHIAZIDE [Concomitant]
     Active Substance: HYDROCHLOROTHIAZIDE\TRIAMTERENE
     Dosage: 1 DOSAGE UNITS, 1X/DAY
  3. DESOXIMETASONE OINTMENT USP 0.05% [Suspect]
     Active Substance: DESOXIMETASONE
     Indication: ECZEMA
     Dosage: UNK UNK, 3X/DAY
     Route: 061
     Dates: start: 20160910
  4. CRESTOR [Concomitant]
     Active Substance: ROSUVASTATIN CALCIUM
     Dosage: 10 MG, 1X/DAY
  5. GABAPENTIN. [Concomitant]
     Active Substance: GABAPENTIN
     Dosage: 300 MG AT NIGHT
  6. MULTIVITAMIN [Concomitant]
     Active Substance: VITAMINS
     Dosage: 1X DAY, AS NEEDED.
  7. VITAMIN D 3 [Concomitant]
     Dosage: UNK, 1X/DAY

REACTIONS (4)
  - Drug ineffective [Unknown]
  - Skin haemorrhage [Unknown]
  - Pruritus [Recovered/Resolved]
  - Excoriation [Recovered/Resolved]

NARRATIVE: CASE EVENT DATE: 2016
